FAERS Safety Report 8267062-5 (Version None)
Quarter: 2012Q2

REPORT INFORMATION
  Report Type: 
  Country: None (occurrence: None)
  Receive Date: 20120409
  Receipt Date: 20120329
  Transmission Date: 20120825
  Serious: Yes (Other)
  Sender: FDA-Public Use
  Company Number: US-BAYER-2011-108088

PATIENT
  Age: 44 Year
  Sex: Female
  Weight: 54 kg

DRUGS (8)
  1. PLAVIX [Concomitant]
     Dosage: UNK
     Dates: start: 20060726
  2. SYNTHROID [Concomitant]
     Indication: HYPOTHYROIDISM
     Dosage: UNK
     Dates: start: 19880101
  3. YASMIN [Suspect]
     Indication: PREMENSTRUAL SYNDROME
  4. YASMIN [Suspect]
     Indication: CONTRACEPTION
     Dosage: UNK UNK, QD
     Route: 048
     Dates: start: 20031001, end: 20060801
  5. YASMIN [Suspect]
     Indication: MENORRHAGIA
  6. ASPIRIN [Concomitant]
  7. AMBIEN [Concomitant]
     Indication: SLEEP DISORDER THERAPY
     Dosage: UNK
     Dates: start: 20050701, end: 20070101
  8. YASMIN [Suspect]
     Indication: MENSTRUAL DISORDER

REACTIONS (7)
  - INJURY [None]
  - FEAR [None]
  - ARTERIAL THROMBOSIS [None]
  - COMPARTMENT SYNDROME [None]
  - ANHEDONIA [None]
  - EMOTIONAL DISTRESS [None]
  - PAIN [None]
